APPROVED DRUG PRODUCT: CODEINE, ASPIRIN, APAP FORMULA NO. 4
Active Ingredient: ACETAMINOPHEN; ASPIRIN; CODEINE PHOSPHATE
Strength: 150MG;180MG;60MG
Dosage Form/Route: CAPSULE;ORAL
Application: A085638 | Product #001
Applicant: SCHERER LABORATORIES INC
Approved: Approved Prior to Jan 1, 1982 | RLD: No | RS: No | Type: DISCN